FAERS Safety Report 25809146 (Version 1)
Quarter: 2025Q3

REPORT INFORMATION
  Report Type: Spontaneous
  Country: CA (occurrence: CA)
  Receive Date: 20250916
  Receipt Date: 20250916
  Transmission Date: 20251020
  Serious: Yes (Death)
  Sender: PURDUE
  Company Number: CA-PURDUE-USA-2025-0320581

PATIENT
  Age: 94 Year
  Sex: Female

DRUGS (1)
  1. DILAUDID [Suspect]
     Active Substance: HYDROMORPHONE HYDROCHLORIDE
     Indication: Product used for unknown indication
     Route: 030

REACTIONS (4)
  - Accidental death [Fatal]
  - Accidental overdose [Fatal]
  - Incorrect dose administered [Fatal]
  - Wrong product administered [Fatal]
